FAERS Safety Report 13567174 (Version 1)
Quarter: 2017Q2

REPORT INFORMATION
  Report Type: Spontaneous
  Country: US (occurrence: US)
  Receive Date: 20170521
  Receipt Date: 20170521
  Transmission Date: 20170830
  Serious: Yes (Disabling, Other)
  Sender: FDA-Public Use
  Company Number: None

PATIENT
  Age: 69 Year
  Sex: Female
  Weight: 78.75 kg

DRUGS (10)
  1. ASPIRIN 81MG [Concomitant]
     Active Substance: ASPIRIN
  2. POTASSIUM CL ER 10MEQ [Suspect]
     Active Substance: POTASSIUM CHLORIDE
     Indication: BLOOD PRESSURE MEASUREMENT
     Dosage: QUANTITY:2 TABLET(S);OTHER FREQUENCY:M-W-F (2) REST (1;?
     Route: 048
     Dates: start: 20150601, end: 20170512
  3. CRESTOR [Concomitant]
     Active Substance: ROSUVASTATIN CALCIUM
  4. POTASSIUM CL [Concomitant]
     Active Substance: POTASSIUM CHLORIDE
  5. ZYRTEC GENERIC [Concomitant]
  6. ZIAC [Concomitant]
     Active Substance: BISOPROLOL FUMARATE\HYDROCHLOROTHIAZIDE
  7. OMEPRAZOLE. [Concomitant]
     Active Substance: OMEPRAZOLE
  8. VITAMIN D3 [Concomitant]
     Active Substance: CHOLECALCIFEROL
  9. ALLEGRA GENERIC [Concomitant]
  10. AZOR [Concomitant]
     Active Substance: AMLODIPINE BESYLATE\OLMESARTAN MEDOXOMIL

REACTIONS (8)
  - Abdominal pain upper [None]
  - Asthenia [None]
  - Food poisoning [None]
  - Vomiting [None]
  - Product substitution issue [None]
  - Diarrhoea [None]
  - Medication residue present [None]
  - Product solubility abnormal [None]

NARRATIVE: CASE EVENT DATE: 20150601
